FAERS Safety Report 7657863-6 (Version None)
Quarter: 2011Q3

REPORT INFORMATION
  Report Type: 
  Country: None (occurrence: None)
  Receive Date: 20110805
  Receipt Date: 20110726
  Transmission Date: 20111222
  Serious: No
  Sender: FDA-Public Use
  Company Number: US-BIOGENIDEC-2011BI026831

PATIENT
  Sex: Female

DRUGS (6)
  1. OMEPRAZOLE [Concomitant]
     Indication: GASTROOESOPHAGEAL REFLUX DISEASE
  2. STRESS B COMPLEX [Concomitant]
     Indication: PRODUCT USED FOR UNKNOWN INDICATION
  3. CALCIUM WITH VITAMIN D [Concomitant]
     Indication: VITAMIN D DEFICIENCY
  4. CALCIUM WITH VITAMIN D [Concomitant]
     Indication: BLOOD CALCIUM DECREASED
  5. TYSABRI [Suspect]
     Indication: MULTIPLE SCLEROSIS
     Route: 042
     Dates: start: 20110715
  6. IMITREX [Concomitant]
     Indication: MIGRAINE

REACTIONS (6)
  - SWELLING [None]
  - CONSTIPATION [None]
  - MIGRAINE [None]
  - NAUSEA [None]
  - MUSCULOSKELETAL DISCOMFORT [None]
  - ABDOMINAL DISTENSION [None]
